FAERS Safety Report 5422192-8 (Version None)
Quarter: 2007Q3

REPORT INFORMATION
  Report Type: 
  Country: None (occurrence: None)
  Receive Date: 20070817
  Receipt Date: 20070801
  Transmission Date: 20080115
  Serious: Yes (Hospitalization)
  Sender: FDA-Public Use
  Company Number: 2007BI010555

PATIENT
  Age: 76 Year
  Sex: Female
  Weight: 83.25 kg

DRUGS (9)
  1. AVONEX [Suspect]
     Indication: MULTIPLE SCLEROSIS
     Dosage: 30 UG; QW; IM
     Route: 030
     Dates: end: 20070401
  2. AVONEX [Suspect]
     Indication: MULTIPLE SCLEROSIS
     Dosage: 30 UG; QW; IM
     Route: 030
     Dates: start: 20070504
  3. ASPIRIN [Concomitant]
  4. FGF (FERRIS SULFATE, FOLIC ACID) [Concomitant]
  5. ANALOPRIL [Concomitant]
  6. LAMISIL [Concomitant]
  7. TEMAZE [Concomitant]
  8. SERETIDE [Concomitant]
  9. PANADOL [Concomitant]

REACTIONS (10)
  - CONFUSIONAL STATE [None]
  - COUGH [None]
  - DISORIENTATION [None]
  - HYPERHIDROSIS [None]
  - HYPOXIA [None]
  - LETHARGY [None]
  - MENTAL STATUS CHANGES [None]
  - PALLOR [None]
  - PYREXIA [None]
  - TACHYCARDIA [None]
